FAERS Safety Report 15116404 (Version 1)
Quarter: 2018Q3

REPORT INFORMATION
  Report Type: Report from Study
  Country: IT (occurrence: IT)
  Receive Date: 20180706
  Receipt Date: 20180706
  Transmission Date: 20181010
  Serious: Yes (Hospitalization)
  Sender: FDA-Public Use
  Company Number: IT-TEVA-2018-IT-922338

PATIENT
  Age: 46 Year
  Sex: Female

DRUGS (4)
  1. SYMBICORT, 160 MICROGRAMMI/4,5 MICROGRAMMI/ INALAZIONE, POLVERE PER IN [Concomitant]
     Indication: ASTHMA
     Route: 055
  2. KETOPROFEN. [Suspect]
     Active Substance: KETOPROFEN
     Route: 048
     Dates: start: 20170608, end: 20170608
  3. LEVOTHYROXINE SODIUM. [Concomitant]
     Active Substance: LEVOTHYROXINE SODIUM
     Route: 048
  4. BRONCOVALEAS 100 MICROGRAMMI/SPRUZZO SOSPENSIONE PRESSURIZZATA PER INA [Concomitant]
     Indication: ASTHMA
     Route: 055

REACTIONS (2)
  - Asthma [Recovered/Resolved]
  - Pancreatitis acute [Recovered/Resolved]

NARRATIVE: CASE EVENT DATE: 20170608
